FAERS Safety Report 25092294 (Version 1)
Quarter: 2025Q1

REPORT INFORMATION
  Report Type: Spontaneous
  Country: US (occurrence: US)
  Receive Date: 20250319
  Receipt Date: 20250319
  Transmission Date: 20250409
  Serious: Yes (Death, Other)
  Sender: AMGEN
  Company Number: US-AMGEN-USASP2025047691

PATIENT

DRUGS (6)
  1. PREDNISONE [Suspect]
     Active Substance: PREDNISONE
     Indication: Plasma cell myeloma refractory
     Route: 065
  2. CARFILZOMIB [Suspect]
     Active Substance: CARFILZOMIB
     Indication: Plasma cell myeloma refractory
     Route: 065
  3. SELINEXOR [Concomitant]
     Active Substance: SELINEXOR
  4. LENALIDOMIDE [Concomitant]
     Active Substance: LENALIDOMIDE
  5. DARATUMUMAB [Concomitant]
     Active Substance: DARATUMUMAB
  6. CYCLOPHOSPHAMIDE\FLUDARABINE [Concomitant]
     Active Substance: CYCLOPHOSPHAMIDE\FLUDARABINE

REACTIONS (6)
  - Death [Fatal]
  - Immune effector cell-associated neurotoxicity syndrome [Recovered/Resolved]
  - Cytokine release syndrome [Recovered/Resolved]
  - Plasma cell myeloma refractory [Unknown]
  - Off label use [Unknown]
  - Blood disorder [Unknown]
